FAERS Safety Report 9685900 (Version 2)
Quarter: 2013Q4

REPORT INFORMATION
  Report Type: Spontaneous
  Country: US (occurrence: US)
  Receive Date: 20131113
  Receipt Date: 20131113
  Transmission Date: 20140711
  Serious: No
  Sender: FDA-Public Use
  Company Number: US-ALLERGAN-1314108US

PATIENT
  Age: 70 Year
  Sex: Female
  Weight: 50.79 kg

DRUGS (6)
  1. COMBIGAN[R] [Suspect]
     Indication: INTRAOCULAR PRESSURE INCREASED
     Dosage: UNK, TWICE A DAY IN BOTH EYES
     Route: 047
     Dates: start: 20130319, end: 20130519
  2. COMBIGAN[R] [Suspect]
     Dosage: UNK
  3. AZOPT [Concomitant]
     Indication: GLAUCOMA
     Dosage: UNK, THREE TIMES A DAY IN BOTH EYES
     Route: 047
     Dates: start: 2004
  4. LUMIGAN [Concomitant]
     Indication: GLAUCOMA
     Dosage: UNK, ONCE A DAY IN BOTH EYES
     Route: 047
     Dates: start: 2004
  5. FOSAMAX [Concomitant]
     Indication: OSTEOPOROSIS
     Dosage: 70 MG, ONCE A WEEK
     Dates: start: 2000
  6. CITRACAL [Concomitant]
     Indication: OSTEOPOROSIS
     Dosage: 500 MG, DAILY
     Dates: start: 2000

REACTIONS (5)
  - Lethargy [Recovered/Resolved]
  - Fatigue [Recovered/Resolved]
  - Depressed level of consciousness [Recovered/Resolved]
  - Hypotension [Recovered/Resolved]
  - Muscular weakness [Recovered/Resolved]
